FAERS Safety Report 15475454 (Version 5)
Quarter: 2019Q1

REPORT INFORMATION
  Report Type: Report from Study
  Country: CA (occurrence: CA)
  Receive Date: 20181008
  Receipt Date: 20190119
  Transmission Date: 20190417
  Serious: Yes (Disabling)
  Sender: FDA-Public Use
  Company Number: CA-ACTELION-A-NJ2018-178112

PATIENT
  Age: 73 Year
  Sex: Female

DRUGS (11)
  1. UPTRAVI [Suspect]
     Active Substance: SELEXIPAG
     Dosage: 600 MCG, UNK
     Route: 048
  2. ADCIRCA [Concomitant]
     Active Substance: TADALAFIL
  3. ALDACTONE [Concomitant]
     Active Substance: SPIRONOLACTONE
  4. LASIX [Concomitant]
     Active Substance: FUROSEMIDE
  5. CRESTOR [Concomitant]
     Active Substance: ROSUVASTATIN CALCIUM
     Dosage: UNK
     Dates: start: 20180820
  6. ELTROXIN [Concomitant]
     Active Substance: LEVOTHYROXINE
  7. UPTRAVI [Suspect]
     Active Substance: SELEXIPAG
     Dosage: 400 MG, UNK
     Route: 048
  8. VOLIBRIS [Concomitant]
     Active Substance: AMBRISENTAN
  9. UPTRAVI [Suspect]
     Active Substance: SELEXIPAG
     Indication: PULMONARY ARTERIAL HYPERTENSION
     Dosage: 200 MCG, BID
     Route: 048
     Dates: start: 20180820
  10. UPTRAVI [Suspect]
     Active Substance: SELEXIPAG
     Dosage: 800 MG, UNK
     Route: 048
  11. PANTOPRAZOLE [Concomitant]
     Active Substance: PANTOPRAZOLE

REACTIONS (9)
  - Adverse drug reaction [Unknown]
  - Migraine [Recovered/Resolved]
  - Arthralgia [Not Recovered/Not Resolved]
  - Nausea [Not Recovered/Not Resolved]
  - Diarrhoea [Not Recovered/Not Resolved]
  - Headache [Not Recovered/Not Resolved]
  - Myalgia [Not Recovered/Not Resolved]
  - Therapy non-responder [Unknown]
  - Throat tightness [Not Recovered/Not Resolved]

NARRATIVE: CASE EVENT DATE: 20180917
